FAERS Safety Report 6072469-0 (Version None)
Quarter: 2009Q1

REPORT INFORMATION
  Report Type: 
  Country: None (occurrence: None)
  Receive Date: 20090210
  Receipt Date: 20090119
  Transmission Date: 20090719
  Serious: Yes (Hospitalization)
  Sender: FDA-Public Use
  Company Number: FR-ROCHE-612763

PATIENT
  Sex: Male

DRUGS (4)
  1. XELODA [Suspect]
     Indication: ADENOCARCINOMA
     Dosage: DOSE: 2600 MG QD.
     Route: 048
     Dates: start: 20080411, end: 20080505
  2. ALTIZIDE/SPIRONOLACTONE [Concomitant]
  3. DIAMICRON [Concomitant]
  4. FENOFIBRATE [Concomitant]

REACTIONS (4)
  - ACCIDENTAL OVERDOSE [None]
  - BONE MARROW FAILURE [None]
  - ENTEROCOLITIS HAEMORRHAGIC [None]
  - PALMAR-PLANTAR ERYTHRODYSAESTHESIA SYNDROME [None]
